FAERS Safety Report 6611058-3 (Version None)
Quarter: 2010Q1

REPORT INFORMATION
  Report Type: 
  Country: None (occurrence: None)
  Receive Date: 20100303
  Receipt Date: 20100218
  Transmission Date: 20100710
  Serious: Yes (Hospitalization)
  Sender: FDA-Public Use
  Company Number: GB-RANBAXY-2010RR-31570

PATIENT
  Age: 2 Year

DRUGS (1)
  1. PARACETAMOL [Suspect]
     Indication: ACCIDENTAL OVERDOSE

REACTIONS (3)
  - ACCIDENTAL OVERDOSE [None]
  - ANALGESIC DRUG LEVEL INCREASED [None]
  - OVERDOSE [None]
